FAERS Safety Report 18823958 (Version 3)
Quarter: 2021Q1

REPORT INFORMATION
  Report Type: Spontaneous
  Country: JP (occurrence: JP)
  Receive Date: 20210202
  Receipt Date: 20210225
  Transmission Date: 20210419
  Serious: Yes (Death)
  Sender: FDA-Public Use
  Company Number: JP-NOVOPROD-783599

PATIENT
  Age: 8 Decade
  Sex: Male
  Weight: 65 kg

DRUGS (1)
  1. REFIXIA [NONACOG BETA PEGOL] [Suspect]
     Active Substance: COAGULATION FACTOR IX (RECOMBINANT), GLYCOPEGYLATED
     Indication: FACTOR IX DEFICIENCY
     Dosage: 2000.00IU
     Route: 042
     Dates: end: 20210113

REACTIONS (1)
  - Respiratory failure [Fatal]

NARRATIVE: CASE EVENT DATE: 20210120
